FAERS Safety Report 4359966-0 (Version None)
Quarter: 2004Q2

REPORT INFORMATION
  Report Type: 
  Country: None (occurrence: None)
  Receive Date: 20040513
  Receipt Date: 20040504
  Transmission Date: 20050107
  Serious: Yes (Hospitalization)
  Sender: FDA-Public Use
  Company Number: 2004-05-0038

PATIENT
  Age: 22 Year
  Sex: Female
  Weight: 57 kg

DRUGS (2)
  1. CELESTAMINE TAB [Suspect]
     Indication: INFLUENZA LIKE ILLNESS
     Dosage: 1 TAB QD ORAL
     Route: 048
     Dates: start: 20030226, end: 20030227
  2. CORTANCYL ORAL, [Suspect]
     Indication: HENOCH-SCHONLEIN PURPURA
     Dosage: 20 MG QD ORAL
     Route: 048
     Dates: start: 20030301, end: 20030315

REACTIONS (3)
  - DUODENAL ULCER [None]
  - HAEMATEMESIS [None]
  - HAEMATOCHEZIA [None]
